FAERS Safety Report 6336518-4 (Version None)
Quarter: 2009Q3

REPORT INFORMATION
  Report Type: 
  Country: None (occurrence: None)
  Receive Date: 20090901
  Receipt Date: 20090824
  Transmission Date: 20100115
  Serious: Yes (Hospitalization)
  Sender: FDA-Public Use
  Company Number: US-ROCHE-647781

PATIENT
  Sex: Male
  Weight: 95 kg

DRUGS (12)
  1. CAPECITABINE [Suspect]
     Indication: NEUROENDOCRINE CARCINOMA
     Dosage: 1500 MG, BID
     Route: 065
     Dates: start: 20090710
  2. BEVACIZUMAB [Suspect]
     Indication: NEUROENDOCRINE CARCINOMA
     Dosage: 7.5 MG/KG, UNK
     Route: 042
     Dates: start: 20090710
  3. OXALIPLATIN [Suspect]
     Indication: NEUROENDOCRINE CARCINOMA
     Dosage: 130 MG/M2, UNK
     Route: 042
     Dates: start: 20090710
  4. DYAZIDE [Concomitant]
     Indication: DRUG USE FOR UNKNOWN INDICATION
     Dosage: UNK UNK, UNK
     Route: 048
  5. LOMOTIL [Concomitant]
     Indication: DRUG USE FOR UNKNOWN INDICATION
     Dosage: UNK MG, PRN
     Route: 048
  6. XELODA [Concomitant]
     Indication: DRUG USE FOR UNKNOWN INDICATION
     Dosage: 2000 MG, Q14D
  7. XELODA [Concomitant]
     Dosage: 1500 MG, Q14D
  8. ZOFRAN [Concomitant]
     Indication: DRUG USE FOR UNKNOWN INDICATION
     Dosage: 8 MG, PRN
     Route: 048
  9. COMPAZINE [Concomitant]
     Indication: DRUG USE FOR UNKNOWN INDICATION
     Dosage: 10 MG, PRN
     Route: 048
  10. ATIVAN [Concomitant]
     Indication: DRUG USE FOR UNKNOWN INDICATION
     Dosage: 1 MG, PRN
     Route: 048
  11. LASIX [Concomitant]
     Indication: DRUG USE FOR UNKNOWN INDICATION
     Dosage: 20 MG, QD
     Route: 048
  12. MULTI-VITAMIN [Concomitant]
     Indication: DRUG USE FOR UNKNOWN INDICATION
     Dosage: UNK UNK, QD
     Route: 048

REACTIONS (2)
  - INTUSSUSCEPTION [None]
  - SMALL INTESTINAL OBSTRUCTION [None]
